FAERS Safety Report 14861484 (Version 3)
Quarter: 2019Q1

REPORT INFORMATION
  Report Type: Report from Study
  Country: None (occurrence: US)
  Receive Date: 20180508
  Receipt Date: 20190217
  Transmission Date: 20190417
  Serious: Yes (Hospitalization, Other)
  Sender: FDA-Public Use
  Company Number: US-ABBVIE-18K-163-2347128-00

PATIENT
  Age: 44 Year
  Sex: Female
  Weight: 81.72 kg

DRUGS (5)
  1. ZYRTEC [Concomitant]
     Active Substance: CETIRIZINE HYDROCHLORIDE
     Indication: HYPERSENSITIVITY
  2. ALLEGRA [Concomitant]
     Active Substance: FEXOFENADINE HYDROCHLORIDE
     Indication: HYPERSENSITIVITY
  3. HUMIRA [Suspect]
     Active Substance: ADALIMUMAB
     Indication: CROHN^S DISEASE
     Route: 058
     Dates: end: 2013
  4. HUMIRA [Suspect]
     Active Substance: ADALIMUMAB
     Indication: RHEUMATOID ARTHRITIS
     Route: 058
     Dates: start: 201403
  5. TYLENOL [Concomitant]
     Active Substance: ACETAMINOPHEN
     Indication: ARTHRALGIA

REACTIONS (16)
  - Crohn^s disease [Unknown]
  - Post procedural infection [Not Recovered/Not Resolved]
  - Abdominal adhesions [Recovered/Resolved]
  - Impaired healing [Unknown]
  - Staphylococcal infection [Not Recovered/Not Resolved]
  - Rectal abscess [Recovered/Resolved]
  - Proctalgia [Not Recovered/Not Resolved]
  - Subcutaneous abscess [Recovered/Resolved]
  - Procedural pain [Recovered/Resolved]
  - Anorectal infection [Recovered/Resolved]
  - Anaemia [Not Recovered/Not Resolved]
  - Anal fistula [Recovered/Resolved]
  - Subcutaneous abscess [Recovered/Resolved]
  - Impaired healing [Not Recovered/Not Resolved]
  - Vaginal fistula [Recovered/Resolved]
  - Red blood cell sedimentation rate increased [Not Recovered/Not Resolved]

NARRATIVE: CASE EVENT DATE: 200808
